FAERS Safety Report 7939387-1 (Version None)
Quarter: 2011Q4

REPORT INFORMATION
  Report Type: 
  Country: None (occurrence: None)
  Receive Date: 20111125
  Receipt Date: 20111118
  Transmission Date: 20120403
  Serious: Yes (Hospitalization)
  Sender: FDA-Public Use
  Company Number: US-AMGEN-USASP2011061057

PATIENT
  Age: 64 Year
  Sex: Male

DRUGS (2)
  1. METHOTREXATE [Concomitant]
     Dosage: 1 MG, UNK
     Dates: start: 20050101
  2. ENBREL [Suspect]
     Indication: RHEUMATOID ARTHRITIS
     Dosage: 50 MG, QWK
     Dates: start: 20110426, end: 20111018

REACTIONS (10)
  - JOINT SWELLING [None]
  - OEDEMA PERIPHERAL [None]
  - SKIN EXFOLIATION [None]
  - ARTHRALGIA [None]
  - JOINT WARMTH [None]
  - ERYTHEMA [None]
  - INJECTION SITE PAIN [None]
  - INJECTION SITE HAEMATOMA [None]
  - LOCALISED INFECTION [None]
  - RHEUMATOID ARTHRITIS [None]
